FAERS Safety Report 6315390-2 (Version None)
Quarter: 2009Q3

REPORT INFORMATION
  Report Type: 
  Country: None (occurrence: None)
  Receive Date: 20090819
  Receipt Date: 20090814
  Transmission Date: 20100115
  Serious: Yes (Death)
  Sender: FDA-Public Use
  Company Number: RU-CELGENEUS-251-21880-09081059

PATIENT
  Sex: Male
  Weight: 56 kg

DRUGS (7)
  1. REVLIMID [Suspect]
     Indication: MULTIPLE MYELOMA
     Route: 048
     Dates: end: 20090810
  2. FRAXIPARIN [Concomitant]
     Indication: THROMBOPHLEBITIS
     Route: 058
     Dates: start: 20090728, end: 20090807
  3. DETRALEX [Concomitant]
     Indication: THROMBOPHLEBITIS
     Route: 048
     Dates: start: 20090731, end: 20090813
  4. FUROSEMIDE [Concomitant]
     Route: 051
     Dates: start: 20090723, end: 20090731
  5. TRENTAL [Concomitant]
     Route: 051
     Dates: start: 20090723, end: 20090731
  6. OMEPRAZOLE [Concomitant]
     Route: 048
     Dates: start: 20090708, end: 20090813
  7. RANITIDINE [Concomitant]
     Route: 048
     Dates: start: 20090731, end: 20090813

REACTIONS (2)
  - AGRANULOCYTOSIS [None]
  - PNEUMONIA [None]
